FAERS Safety Report 16700257 (Version 1)
Quarter: 2019Q3

REPORT INFORMATION
  Report Type: Spontaneous
  Country: FR (occurrence: FR)
  Receive Date: 20190814
  Receipt Date: 20190814
  Transmission Date: 20191004
  Serious: Yes (Hospitalization, Other)
  Sender: FDA-Public Use
  Company Number: FR-AUROBINDO-AUR-APL-2019-052200

PATIENT

DRUGS (6)
  1. PRAZEPAM [Suspect]
     Active Substance: PRAZEPAM
     Indication: PRODUCT USED FOR UNKNOWN INDICATION
     Dosage: 15 DOSAGE FORM, 1 IN TOTAL
     Route: 048
     Dates: start: 20180518, end: 20180518
  2. ABILIFY [Suspect]
     Active Substance: ARIPIPRAZOLE
     Dosage: 20 DOSAGE FORM, 1 IN TOTAL
     Route: 048
     Dates: start: 20180518, end: 20180518
  3. FLUOXETINE [Suspect]
     Active Substance: FLUOXETINE HYDROCHLORIDE
     Indication: PRODUCT USED FOR UNKNOWN INDICATION
     Dosage: 10 DOSAGE FORM, 1 IN TOTAL
     Route: 048
     Dates: start: 20180518, end: 20180518
  4. XARELTO [Suspect]
     Active Substance: RIVAROXABAN
     Indication: PRODUCT USED FOR UNKNOWN INDICATION
     Dosage: 10 DOSAGE FORM,1 IN TOTAL
     Route: 048
     Dates: start: 20180518, end: 20180518
  5. PRAZEPAM [Suspect]
     Active Substance: PRAZEPAM
     Dosage: 20 DOSAGE FORM,1 IN TOTAL
     Route: 048
     Dates: start: 20180518, end: 20180518
  6. ABILIFY [Suspect]
     Active Substance: ARIPIPRAZOLE
     Indication: PRODUCT USED FOR UNKNOWN INDICATION
     Dosage: 20 DOSAGE FORM, 1 IN TOTAL
     Route: 048
     Dates: start: 20180518, end: 20180518

REACTIONS (2)
  - Toxicity to various agents [Recovered/Resolved]
  - Haemorrhage [Recovered/Resolved]

NARRATIVE: CASE EVENT DATE: 20180518
